FAERS Safety Report 13867345 (Version 1)
Quarter: 2017Q3

REPORT INFORMATION
  Report Type: Spontaneous
  Country: US (occurrence: US)
  Receive Date: 20170814
  Receipt Date: 20170814
  Transmission Date: 20171127
  Serious: Yes (Other)
  Sender: FDA-Public Use
  Company Number: US-PFIZER INC-3084455

PATIENT
  Age: 49 Year
  Sex: Male

DRUGS (2)
  1. METHOTREXATE SODIUM. [Suspect]
     Active Substance: METHOTREXATE SODIUM
     Indication: RHEUMATOID ARTHRITIS
     Dosage: 17.5 MG, FREQ: 1 WEEK; INTERVAL: 1
  2. PREDNISONE. [Suspect]
     Active Substance: PREDNISONE
     Indication: RHEUMATOID ARTHRITIS
     Dosage: 15 MG, FREQ: 1 DAY; INTERVAL: 1

REACTIONS (2)
  - Immunosuppression [Unknown]
  - Kaposi^s sarcoma [Recovered/Resolved]
